FAERS Safety Report 21330651 (Version 1)
Quarter: 2022Q3

REPORT INFORMATION
  Report Type: Spontaneous
  Country: US (occurrence: None)
  Receive Date: 20220913
  Receipt Date: 20220913
  Transmission Date: 20221026
  Serious: No
  Sender: FDA-Public Use
  Company Number: None

PATIENT
  Age: 90 Year
  Sex: Male
  Weight: 59 kg

DRUGS (1)
  1. RIVAROXABAN [Suspect]
     Active Substance: RIVAROXABAN
     Indication: Deep vein thrombosis
     Dosage: FREQUENCY : DAILY;?
     Route: 048
     Dates: start: 20220309, end: 20220503

REACTIONS (3)
  - Haemoglobin decreased [None]
  - Haematocrit decreased [None]
  - Gastric haemorrhage [None]

NARRATIVE: CASE EVENT DATE: 20220502
